FAERS Safety Report 18681404 (Version 1)
Quarter: 2020Q4

REPORT INFORMATION
  Report Type: Spontaneous
  Country: US (occurrence: US)
  Receive Date: 20201229
  Receipt Date: 20201229
  Transmission Date: 20210114
  Serious: Yes (Death, Hospitalization, Other)
  Sender: FDA-Public Use
  Company Number: US-PURDUE-USA-2020-0192163

PATIENT
  Sex: Male

DRUGS (1)
  1. OXYCODONE HYDROCHLORIDE (SIMILAR TO NDA 22-272) [Suspect]
     Active Substance: OXYCODONE HYDROCHLORIDE
     Indication: PRODUCT USED FOR UNKNOWN INDICATION
     Dosage: UNK
     Route: 048

REACTIONS (14)
  - Death [Fatal]
  - Drug dependence [Unknown]
  - Sexual dysfunction [Unknown]
  - Decubitus ulcer [Unknown]
  - Feeding disorder [Unknown]
  - Cerebrovascular accident [Unknown]
  - Constipation [Unknown]
  - Staphylococcal infection [Unknown]
  - Depression [Unknown]
  - Hospitalisation [Unknown]
  - Mobility decreased [Unknown]
  - Vomiting [Unknown]
  - Nervous system disorder [Unknown]
  - Weight decreased [Unknown]

NARRATIVE: CASE EVENT DATE: 20141203
